FAERS Safety Report 7341153-5 (Version None)
Quarter: 2011Q1

REPORT INFORMATION
  Report Type: 
  Country: None (occurrence: None)
  Receive Date: 20110309
  Receipt Date: 20110302
  Transmission Date: 20110831
  Serious: Yes (Hospitalization)
  Sender: FDA-Public Use
  Company Number: A0917203A

PATIENT
  Age: 61 Year
  Sex: Female

DRUGS (1)
  1. VENTOLIN HFA [Suspect]
     Route: 055
     Dates: start: 20100401

REACTIONS (3)
  - THYROID CANCER [None]
  - ADVERSE EVENT [None]
  - LUNG NEOPLASM MALIGNANT [None]
